FAERS Safety Report 4312766-X (Version None)
Quarter: 2004Q1

REPORT INFORMATION
  Report Type: 
  Country: None (occurrence: None)
  Receive Date: 20040305
  Receipt Date: 20040212
  Transmission Date: 20041129
  Serious: Yes (Other)
  Sender: FDA-Public Use
  Company Number: CIO03018686

PATIENT
  Age: 78 Year
  Sex: Male
  Weight: 70.3 kg

DRUGS (2)
  1. NYQUIL FORM/ VERSION/ FLAVOR UNKNOWN (DOXYLAMINE SUCCINATE UNKNOWN UNK [Suspect]
     Indication: PHARYNGOLARYNGEAL PAIN
     Dosage: 1 LIQUCAP, 3/DAY FOR 1 DAY, ORAL
     Route: 048
     Dates: start: 20030317, end: 20030317
  2. PHENYTOIN [Concomitant]

REACTIONS (7)
  - CONDUCTION DISORDER [None]
  - CONVULSION [None]
  - DISTURBANCE IN ATTENTION [None]
  - FEELING ABNORMAL [None]
  - NERVOUS SYSTEM DISORDER [None]
  - PAIN [None]
  - STUPOR [None]
